FAERS Safety Report 19261829 (Version 1)
Quarter: 2021Q2

REPORT INFORMATION
  Report Type: Spontaneous
  Country: SE (occurrence: SE)
  Receive Date: 20210515
  Receipt Date: 20210515
  Transmission Date: 20210717
  Serious: Yes (Life-Threatening)
  Sender: FDA-Public Use
  Company Number: SE-TEVA-2021-SE-1909597

PATIENT
  Age: 83 Year
  Sex: Male
  Weight: 77 kg

DRUGS (2)
  1. HERACILLIN 1 G FILMDRAGERAD TABLETT [Suspect]
     Active Substance: FLUCLOXACILLIN SODIUM
     Indication: POSTOPERATIVE WOUND INFECTION
     Dosage: 1 G 1X3, 3 GRAM
     Route: 048
     Dates: start: 20210125, end: 20210213
  2. LOSARTAN TEVA 50 MG FILMDRAGERAD TABLETT [Suspect]
     Active Substance: LOSARTAN POTASSIUM
     Indication: HYPERTENSION
     Dosage: 50 MG 1X1
     Route: 048
     Dates: start: 20170310

REACTIONS (3)
  - Jaundice [Not Recovered/Not Resolved]
  - Liver function test abnormal [Not Recovered/Not Resolved]
  - Blood bilirubin increased [Not Recovered/Not Resolved]

NARRATIVE: CASE EVENT DATE: 202103
